FAERS Safety Report 23976229 (Version 1)
Quarter: 2024Q2

REPORT INFORMATION
  Report Type: Spontaneous
  Country: CN (occurrence: CN)
  Receive Date: 20240614
  Receipt Date: 20240614
  Transmission Date: 20240716
  Serious: Yes (Life-Threatening, Hospitalization)
  Sender: FDA-Public Use
  Company Number: CN-BAYER-2024A086144

PATIENT
  Age: 35 Year
  Sex: Female

DRUGS (1)
  1. MIRENA [Suspect]
     Active Substance: LEVONORGESTREL
     Indication: Adenomyosis
     Dosage: 20?G/DAY
     Route: 015
     Dates: start: 20240527, end: 20240531

REACTIONS (7)
  - Anaemia [Recovering/Resolving]
  - Coagulopathy [Recovering/Resolving]
  - Pelvic inflammatory disease [Recovering/Resolving]
  - Abdominal pain lower [Recovering/Resolving]
  - Hypofibrinogenaemia [Recovering/Resolving]
  - Off label use of device [None]
  - Device use issue [None]

NARRATIVE: CASE EVENT DATE: 20240527
